FAERS Safety Report 10151498 (Version 1)
Quarter: 2014Q2

REPORT INFORMATION
  Report Type: Spontaneous
  Country: US (occurrence: US)
  Receive Date: 20140503
  Receipt Date: 20140503
  Transmission Date: 20141212
  Serious: No
  Sender: FDA-Public Use
  Company Number: US-TEVA-478883USA

PATIENT
  Sex: Male

DRUGS (1)
  1. COPAXONE [Suspect]
     Dates: start: 2005

REACTIONS (3)
  - Injection site pain [Unknown]
  - Loss of dreaming [Unknown]
  - Psychiatric symptom [Unknown]
